FAERS Safety Report 11270259 (Version 1)
Quarter: 2020Q3

REPORT INFORMATION
  Report Type: Report from Study
  Country: HU (occurrence: HU)
  Receive Date: 20150714
  Receipt Date: 20150714
  Transmission Date: 20201104
  Serious: Yes (Hospitalization)
  Sender: FDA-Public Use
  Company Number: HU-JNJFOC-20130611144

PATIENT
  Age: 47 Year
  Sex: Female
  Weight: 35.2 kg

DRUGS (8)
  1. MESALAZINE [Concomitant]
     Active Substance: MESALAMINE
     Indication: CROHN^S DISEASE
     Dosage: 4 X 1000 MG
     Route: 048
  2. USTEKINUMAB [Suspect]
     Active Substance: USTEKINUMAB
     Indication: CROHN^S DISEASE
     Route: 042
     Dates: start: 20130410
  3. FERRO FOLGAMMA [Concomitant]
     Indication: ANAEMIA
     Route: 050
  4. PENTOXYPHYLLIN [Concomitant]
     Indication: CROHN^S DISEASE
     Route: 048
  5. MEDROL [Concomitant]
     Active Substance: METHYLPREDNISOLONE
     Indication: CROHN^S DISEASE
     Route: 048
  6. USTEKINUMAB [Suspect]
     Active Substance: USTEKINUMAB
     Route: 042
  7. SYNCUMAR [Concomitant]
     Active Substance: ACENOCOUMAROL
     Indication: THROMBOSIS PROPHYLAXIS
     Route: 050
  8. NOACID [PANTOPRAZOLE SODIUM SESQUIHYDRATE] [Concomitant]
     Active Substance: PANTOPRAZOLE SODIUM
     Indication: PROPHYLAXIS
     Route: 050

REACTIONS (1)
  - Gastroenteritis [Recovered/Resolved]

NARRATIVE: CASE EVENT DATE: 20130602
